FAERS Safety Report 20263169 (Version 2)
Quarter: 2022Q1

REPORT INFORMATION
  Report Type: Spontaneous
  Country: GB (occurrence: GB)
  Receive Date: 20211231
  Receipt Date: 20220107
  Transmission Date: 20220424
  Serious: Yes (Other)
  Sender: FDA-Public Use
  Company Number: GB-CELLTRION INC.-2021GB017874

PATIENT

DRUGS (1)
  1. INFLIXIMAB [Suspect]
     Active Substance: INFLIXIMAB
     Indication: Product used for unknown indication
     Dosage: UNK, EOW (EVERY OTHER WEEK)

REACTIONS (4)
  - Lupus-like syndrome [Unknown]
  - Shock [Unknown]
  - Loss of control of legs [Unknown]
  - Feeling abnormal [Unknown]
